FAERS Safety Report 25338699 (Version 5)
Quarter: 2025Q3

REPORT INFORMATION
  Report Type: Report from Study
  Country: US (occurrence: US)
  Receive Date: 20250520
  Receipt Date: 20250822
  Transmission Date: 20251020
  Serious: Yes (Other)
  Sender: MALLINCKRODT
  Company Number: US-MALLINCKRODT-MNK202502792

PATIENT
  Sex: Female

DRUGS (6)
  1. CORTICOTROPIN [Suspect]
     Active Substance: CORTICOTROPIN
     Indication: Rheumatoid arthritis
  2. CORTICOTROPIN [Suspect]
     Active Substance: CORTICOTROPIN
  3. CORTICOTROPIN [Suspect]
     Active Substance: CORTICOTROPIN
  4. CORTICOTROPIN [Suspect]
     Active Substance: CORTICOTROPIN
     Dates: start: 20250602
  5. CORTICOTROPIN [Suspect]
     Active Substance: CORTICOTROPIN
  6. METHOTREXATE [Concomitant]
     Active Substance: METHOTREXATE

REACTIONS (9)
  - Rheumatoid arthritis [Unknown]
  - Neuropathy peripheral [Unknown]
  - Flushing [Unknown]
  - Increased tendency to bruise [Unknown]
  - Dysphonia [Unknown]
  - Erythema [Unknown]
  - Peripheral swelling [Unknown]
  - Injection site discolouration [Unknown]
  - Therapy non-responder [Unknown]
